FAERS Safety Report 17145056 (Version 1)
Quarter: 2019Q4

REPORT INFORMATION
  Report Type: Spontaneous
  Country: US (occurrence: US)
  Receive Date: 20191211
  Receipt Date: 20191211
  Transmission Date: 20200122
  Serious: Yes (Other)
  Sender: FDA-Public Use
  Company Number: None

PATIENT
  Age: 34 Year
  Sex: Female
  Weight: 103.5 kg

DRUGS (10)
  1. CORLANOR [Concomitant]
     Active Substance: IVABRADINE HYDROCHLORIDE
  2. SPIRIVA [Concomitant]
     Active Substance: TIOTROPIUM BROMIDE MONOHYDRATE
  3. VITAMIN B COMPLEX [Concomitant]
     Active Substance: CYANOCOBALAMIN\DEXPANTHENOL\NIACINAMIDE\PYRIDOXINE HYDROCHLORIDE\RIBOFLAVIN 5^-PHOSPHATE SODIUM\THIAMINE HYDROCHLORIDE\VITAMIN B COMPLEX
  4. OMEPRAZOLE, DELAYED RELEASE [Suspect]
     Active Substance: OMEPRAZOLE
     Indication: GASTROOESOPHAGEAL REFLUX DISEASE
     Dosage: ?          QUANTITY:1 CAPSULE(S);?
     Route: 048
     Dates: start: 20120101, end: 20191001
  5. MELATONIN [Concomitant]
     Active Substance: MELATONIN
  6. CALCIUM [Concomitant]
     Active Substance: CALCIUM
  7. MULTIVITAMIN [Concomitant]
     Active Substance: VITAMINS
  8. ADVAIR HFA [Concomitant]
     Active Substance: FLUTICASONE PROPIONATE\SALMETEROL XINAFOATE
  9. ALBUTEROL. [Concomitant]
     Active Substance: ALBUTEROL
  10. MAGNESIUM [Concomitant]
     Active Substance: MAGNESIUM

REACTIONS (7)
  - Product use issue [None]
  - Depression [None]
  - Magnesium metabolism disorder [None]
  - Hypovitaminosis [None]
  - Quality of life decreased [None]
  - Anxiety [None]
  - Mental disorder [None]

NARRATIVE: CASE EVENT DATE: 20191001
